FAERS Safety Report 20814731 (Version 1)
Quarter: 2022Q2

REPORT INFORMATION
  Report Type: Spontaneous
  Country: US (occurrence: None)
  Receive Date: 20220511
  Receipt Date: 20220511
  Transmission Date: 20220721
  Serious: Yes (Hospitalization)
  Sender: FDA-Public Use
  Company Number: None

PATIENT
  Sex: Female
  Weight: 39.6 kg

DRUGS (5)
  1. DEXAMETHASONE [Suspect]
     Active Substance: DEXAMETHASONE
  2. METHOTREXATE [Concomitant]
  3. ONCASPAR [Concomitant]
     Active Substance: PEGASPARGASE
  4. CYTARABINE [Concomitant]
  5. VINCRISTINE SULFATE [Concomitant]

REACTIONS (22)
  - Mental status changes [None]
  - Seizure like phenomena [None]
  - Cough [None]
  - Hyporesponsive to stimuli [None]
  - Gaze palsy [None]
  - Irritability [None]
  - Unresponsive to stimuli [None]
  - Saccadic eye movement [None]
  - Cheilitis [None]
  - Eye movement disorder [None]
  - Blood pressure increased [None]
  - Tachycardia [None]
  - White blood cell count decreased [None]
  - Haemoglobin decreased [None]
  - Respiratory acidosis [None]
  - Blood sodium decreased [None]
  - Blood calcium decreased [None]
  - Nystagmus [None]
  - Toxicity to various agents [None]
  - Metabolic syndrome [None]
  - Cerebrovascular accident [None]
  - Ammonia increased [None]

NARRATIVE: CASE EVENT DATE: 20220427
